FAERS Safety Report 4726722-0 (Version None)
Quarter: 2005Q3

REPORT INFORMATION
  Report Type: 
  Country: None (occurrence: None)
  Receive Date: 20050725
  Receipt Date: 20050209
  Transmission Date: 20060218
  Serious: No
  Sender: FDA-Public Use
  Company Number: USA050289712

PATIENT
  Age: 23 Year
  Sex: Male
  Weight: 70 kg

DRUGS (2)
  1. STRATTERA [Suspect]
     Indication: ATTENTION DEFICIT/HYPERACTIVITY DISORDER
     Dosage: 60 MG/1 DAY
     Dates: start: 20050131
  2. RITALIN [Concomitant]

REACTIONS (3)
  - DYSGEUSIA [None]
  - NAUSEA [None]
  - TESTICULAR PAIN [None]
